FAERS Safety Report 15212840 (Version 2)
Quarter: 2018Q3

REPORT INFORMATION
  Report Type: Spontaneous
  Country: US (occurrence: US)
  Receive Date: 20180730
  Receipt Date: 20180809
  Transmission Date: 20181010
  Serious: No
  Sender: FDA-Public Use
  Company Number: US-GALDERMA-US18024612

PATIENT
  Age: 68 Year
  Sex: Female

DRUGS (13)
  1. TRAZODONE [Concomitant]
     Active Substance: TRAZODONE HYDROCHLORIDE
  2. PROACTIV MD ADAPALENE ACNE TREATMENT [Suspect]
     Active Substance: ADAPALENE
     Indication: SKIN EXFOLIATION
     Dosage: 0.1%
     Route: 061
     Dates: start: 20180331, end: 20180414
  3. METFORMAN [Concomitant]
     Active Substance: METFORMIN HYDROCHLORIDE
  4. LORSARTIN [Concomitant]
  5. PROACTIV MD DEEP CLEANSING FACE WASH [Concomitant]
     Active Substance: COSMETICS
     Indication: SKIN EXFOLIATION
     Route: 061
     Dates: start: 20180331, end: 20180414
  6. GLIPIZIDE. [Concomitant]
     Active Substance: GLIPIZIDE
  7. POTASIUM [Concomitant]
  8. LEVEMIR [Concomitant]
     Active Substance: INSULIN DETEMIR
  9. 81 MG ASPIRIN [Concomitant]
     Active Substance: ASPIRIN
  10. PROACTIV MD DAILY OIL CONTROL SPF 30 [Suspect]
     Active Substance: AVOBENZONE\OCTISALATE\OCTOCRYLENE
     Indication: SKIN EXFOLIATION
     Route: 061
     Dates: start: 20180331, end: 20180414
  11. CRESTOR [Concomitant]
     Active Substance: ROSUVASTATIN CALCIUM
  12. SERTRALINE [Concomitant]
     Active Substance: SERTRALINE HYDROCHLORIDE
  13. MONTELUKAST [Concomitant]
     Active Substance: MONTELUKAST SODIUM

REACTIONS (4)
  - Pruritus [Recovered/Resolved]
  - Product use in unapproved indication [Recovered/Resolved]
  - Inappropriate schedule of drug administration [Recovered/Resolved]
  - Overdose [Recovered/Resolved]

NARRATIVE: CASE EVENT DATE: 20180331
